FAERS Safety Report 7430432-9 (Version None)
Quarter: 2011Q2

REPORT INFORMATION
  Report Type: 
  Country: None (occurrence: None)
  Receive Date: 20110419
  Receipt Date: 20110419
  Transmission Date: 20111010
  Serious: No
  Sender: FDA-Public Use
  Company Number: None

PATIENT
  Age: 50 Year
  Sex: Female
  Weight: 77.1115 kg

DRUGS (3)
  1. BUPROPION HCL [Concomitant]
  2. ABILIFY [Suspect]
     Indication: DEPRESSION
     Dosage: 4 MG ONCE A DAY PO
     Route: 048
     Dates: start: 20100829, end: 20110301
  3. EFFEXOR [Concomitant]

REACTIONS (5)
  - RESTLESS LEGS SYNDROME [None]
  - DRUG EFFECT DECREASED [None]
  - DISTURBANCE IN ATTENTION [None]
  - POOR QUALITY SLEEP [None]
  - BOREDOM [None]
